FAERS Safety Report 4795896-8 (Version None)
Quarter: 2005Q4

REPORT INFORMATION
  Report Type: 
  Country: None (occurrence: None)
  Receive Date: 20051012
  Receipt Date: 20050930
  Transmission Date: 20060501
  Serious: Yes (Death, Hospitalization)
  Sender: FDA-Public Use
  Company Number: IS-MERCK-0510DNK00001

PATIENT
  Age: 67 Year
  Sex: Male

DRUGS (2)
  1. VIOXX [Suspect]
     Indication: ARTHRALGIA
     Route: 048
     Dates: start: 20000320, end: 20040309
  2. TRIMIPRAMINE MALEATE [Concomitant]
     Indication: SLEEP DISORDER
     Route: 048
     Dates: start: 20000411, end: 20040309

REACTIONS (4)
  - ACUTE CORONARY SYNDROME [None]
  - CARDIAC ARREST [None]
  - DEATH [None]
  - VENTRICULAR FIBRILLATION [None]
